FAERS Safety Report 15434149 (Version 1)
Quarter: 2018Q4

REPORT INFORMATION
  Report Type: Spontaneous
  Country: JP (occurrence: JP)
  Receive Date: 20180927
  Receipt Date: 20180927
  Transmission Date: 20190204
  Serious: Yes (Hospitalization, Other)
  Sender: FDA-Public Use
  Company Number: JP-TEVA-2018-JP-005270J

PATIENT
  Age: 86 Year
  Sex: Male
  Weight: 47 kg

DRUGS (11)
  1. VERAPAMIL HYDROCHLORIDE TABLET TAIYO [Suspect]
     Active Substance: VERAPAMIL HYDROCHLORIDE
     Dosage: 80 MILLIGRAM DAILY; IN THE MORNING AND EVENING
     Route: 048
     Dates: start: 20180906
  2. VERAPAMIL HYDROCHLORIDE TABLET TAIYO [Suspect]
     Active Substance: VERAPAMIL HYDROCHLORIDE
     Dosage: 40 MILLIGRAM DAILY;
     Route: 048
  3. WARFARIN [Concomitant]
     Active Substance: WARFARIN
     Dosage: 3.5 DOSAGE FORMS DAILY;
     Route: 065
     Dates: end: 20180831
  4. VERAPAMIL HYDROCHLORIDE TABLET TAIYO [Suspect]
     Active Substance: VERAPAMIL HYDROCHLORIDE
     Dosage: AS NEEDED
     Route: 048
  5. PILSICAINIDE HYDROCHLORIDE HYDRATE CAPSULE 50MG TEVA [Suspect]
     Active Substance: PILSICAINIDE HYDROCHLORIDE HEMIHYDRATE
     Indication: ATRIAL FIBRILLATION
     Dosage: 100 MILLIGRAM DAILY; IN THE MORNING AND EVENING
     Route: 048
     Dates: end: 20180831
  6. VERAPAMIL HYDROCHLORIDE TABLET TAIYO [Suspect]
     Active Substance: VERAPAMIL HYDROCHLORIDE
     Indication: ATRIAL FIBRILLATION
     Dosage: 80 MILLIGRAM DAILY;
     Route: 048
     Dates: end: 20180831
  7. ALPHAGAN P [Concomitant]
     Active Substance: BRIMONIDINE TARTRATE
     Route: 065
  8. VERAPAMIL HYDROCHLORIDE TABLET TAIYO [Suspect]
     Active Substance: VERAPAMIL HYDROCHLORIDE
     Dosage: AS NEEDED
     Route: 048
     Dates: start: 20180830, end: 20180831
  9. DIQUAS [Concomitant]
     Active Substance: DIQUAFOSOL TETRASODIUM
     Route: 065
  10. TAPROS [Concomitant]
     Route: 065
  11. DORMOLOL [Concomitant]
     Route: 065

REACTIONS (6)
  - Renal impairment [Unknown]
  - Hepatic function abnormal [Unknown]
  - Sinus node dysfunction [Recovering/Resolving]
  - Chest pain [Unknown]
  - Palpitations [Unknown]
  - Inappropriate schedule of product administration [Unknown]

NARRATIVE: CASE EVENT DATE: 20180830
